FAERS Safety Report 4503401-6 (Version None)
Quarter: 2004Q4

REPORT INFORMATION
  Report Type: 
  Country: None (occurrence: None)
  Receive Date: 20041117
  Receipt Date: 20041109
  Transmission Date: 20050328
  Serious: Yes (Life-Threatening)
  Sender: FDA-Public Use
  Company Number: NO-GLAXOSMITHKLINE-B0351292A

PATIENT
  Age: 77 Year
  Sex: Female

DRUGS (10)
  1. ZANTAC [Suspect]
     Dosage: 300MG TWICE PER DAY
     Route: 048
     Dates: end: 20040901
  2. EFFEXOR [Suspect]
     Route: 048
     Dates: start: 20030101, end: 20040901
  3. CALCIUM CARBONATE [Concomitant]
     Route: 065
  4. APODORM [Concomitant]
     Route: 065
  5. DIURAL [Concomitant]
     Route: 065
  6. MELATONIN [Concomitant]
     Route: 065
  7. OVESTERIN [Concomitant]
     Route: 065
  8. IRON [Concomitant]
     Route: 065
  9. HIPREX [Concomitant]
     Route: 065
  10. MULTI-VITAMINS [Concomitant]

REACTIONS (5)
  - ALANINE AMINOTRANSFERASE INCREASED [None]
  - ASPARTATE AMINOTRANSFERASE INCREASED [None]
  - HEPATIC ENZYME INCREASED [None]
  - HEPATITIS [None]
  - JAUNDICE [None]
